FAERS Safety Report 16984980 (Version 1)
Quarter: 2019Q4

REPORT INFORMATION
  Report Type: Spontaneous
  Country: CA (occurrence: CA)
  Receive Date: 20191101
  Receipt Date: 20191101
  Transmission Date: 20200122
  Serious: Yes (Other)
  Sender: FDA-Public Use
  Company Number: CA-TEVA-2019-CA-1129038

PATIENT
  Age: 61 Year
  Sex: Female

DRUGS (12)
  1. OXALIPLATIN. [Suspect]
     Active Substance: OXALIPLATIN
     Indication: SMALL INTESTINE CARCINOMA METASTATIC
  2. EFUDEX [Suspect]
     Active Substance: FLUOROURACIL
     Indication: SMALL INTESTINE CARCINOMA METASTATIC
     Route: 065
  3. IRINOTECAN [Suspect]
     Active Substance: IRINOTECAN
     Indication: ADENOCARCINOMA
  4. IRINOTECAN [Suspect]
     Active Substance: IRINOTECAN
     Indication: METASTASES TO LUNG
     Route: 065
  5. OXALIPLATIN. [Suspect]
     Active Substance: OXALIPLATIN
     Indication: METASTASES TO LUNG
  6. EFUDEX [Suspect]
     Active Substance: FLUOROURACIL
     Indication: METASTASES TO LUNG
     Route: 065
  7. OXALIPLATIN. [Suspect]
     Active Substance: OXALIPLATIN
     Indication: MALIGNANT NEOPLASM OF AMPULLA OF VATER
  8. IRINOTECAN [Suspect]
     Active Substance: IRINOTECAN
     Indication: MALIGNANT NEOPLASM OF AMPULLA OF VATER
  9. OXALIPLATIN. [Suspect]
     Active Substance: OXALIPLATIN
     Indication: ADENOCARCINOMA
     Route: 065
  10. IRINOTECAN [Suspect]
     Active Substance: IRINOTECAN
     Indication: SMALL INTESTINE CARCINOMA METASTATIC
     Route: 065
  11. EFUDEX [Suspect]
     Active Substance: FLUOROURACIL
     Indication: MALIGNANT NEOPLASM OF AMPULLA OF VATER
     Route: 065
  12. EFUDEX [Suspect]
     Active Substance: FLUOROURACIL
     Indication: ADENOCARCINOMA

REACTIONS (2)
  - Peripheral sensory neuropathy [Recovered/Resolved]
  - Bone marrow failure [Recovered/Resolved]
